FAERS Safety Report 9036422 (Version 1)
Quarter: 2013Q1

REPORT INFORMATION
  Report Type: Spontaneous
  Country: US (occurrence: None)
  Receive Date: 20130117
  Receipt Date: 20130117
  Transmission Date: 20140127
  Serious: Yes (Other)
  Sender: FDA-Public Use
  Company Number: None

PATIENT
  Sex: Female
  Weight: 66 kg

DRUGS (1)
  1. REMBRANDT 2-HOUR WHITE KIT [Suspect]
     Route: 004
     Dates: start: 20121201, end: 20121201

REACTIONS (3)
  - Mouth ulceration [None]
  - Pain [None]
  - Tenderness [None]
